FAERS Safety Report 7920863-2 (Version None)
Quarter: 2011Q4

REPORT INFORMATION
  Report Type: 
  Country: None (occurrence: None)
  Receive Date: 20111117
  Receipt Date: 20110901
  Transmission Date: 20120403
  Serious: No
  Sender: FDA-Public Use
  Company Number: US-GLAXOSMITHKLINE-A0943197A

PATIENT
  Age: 56 Year
  Sex: Male

DRUGS (5)
  1. LOSARTAN POTASSIUM [Concomitant]
  2. TESTIM [Concomitant]
     Route: 061
  3. VOTRIENT [Suspect]
     Indication: RENAL CELL CARCINOMA
     Dosage: 800MG PER DAY
     Route: 048
     Dates: start: 20110810
  4. FLORINEF [Concomitant]
  5. HYDROCORTISONE [Concomitant]

REACTIONS (2)
  - MYALGIA [None]
  - FATIGUE [None]
